FAERS Safety Report 7411312-1 (Version None)
Quarter: 2011Q2

REPORT INFORMATION
  Report Type: 
  Country: None (occurrence: None)
  Receive Date: 20110413
  Receipt Date: 20100617
  Transmission Date: 20111010
  Serious: No
  Sender: FDA-Public Use
  Company Number: US-BRISTOL-MYERS SQUIBB COMPANY-15141518

PATIENT
  Age: 66 Year
  Sex: Female

DRUGS (11)
  1. DARVOCET-N 100 [Concomitant]
     Dosage: 4TO6HRS TABLET
     Route: 048
  2. LORAZEPAM [Concomitant]
     Dosage: TABLET 0.5 MG ONCE EVERY 8 HOURS WHEN NECESSARY
     Route: 048
     Dates: start: 20070911
  3. ZOLOFT [Concomitant]
     Dosage: TABLET
     Route: 048
  4. BENADRYL [Concomitant]
     Dosage: 1DF-1TABLET
     Route: 048
     Dates: start: 20071128
  5. ONDANSETRON [Concomitant]
     Dosage: TABLET 4 MG TAKEN ONCE EVERY 8 HOURS WHEN NECESSARY
     Dates: start: 20070925
  6. METOCLOPRAMIDE HCL [Concomitant]
     Dosage: 1 DF = 1-2 (5 MG) ONCE EVERY 6 HOURS, WHEN NECESSARY
     Route: 048
     Dates: start: 20080401
  7. TUSSIN DM [Concomitant]
     Dosage: SYRUP
     Route: 048
     Dates: start: 20080925
  8. LISINOPRIL [Concomitant]
     Route: 048
     Dates: start: 20090325
  9. MAXALT [Concomitant]
     Route: 048
     Dates: start: 20090119
  10. PANTOPRAZOLE SODIUM [Concomitant]
     Route: 048
     Dates: start: 20090318
  11. ERBITUX [Suspect]
     Indication: LUNG NEOPLASM MALIGNANT
     Route: 042
     Dates: start: 20090121

REACTIONS (1)
  - BLOOD MAGNESIUM DECREASED [None]
